FAERS Safety Report 24768068 (Version 1)
Quarter: 2024Q4

REPORT INFORMATION
  Report Type: Spontaneous
  Country: JP (occurrence: JP)
  Receive Date: 20241223
  Receipt Date: 20241223
  Transmission Date: 20250114
  Serious: Yes (Hospitalization, Other)
  Sender: MERCK
  Company Number: JP-MSD-2411JPN000607J

PATIENT
  Age: 6 Decade
  Sex: Female

DRUGS (1)
  1. KEYTRUDA [Suspect]
     Active Substance: PEMBROLIZUMAB
     Indication: Cervix carcinoma
     Dosage: UNK
     Route: 041

REACTIONS (7)
  - Cytokine release syndrome [Unknown]
  - Non-cardiogenic pulmonary oedema [Unknown]
  - Capillary leak syndrome [Unknown]
  - Febrile neutropenia [Recovered/Resolved]
  - Metabolic acidosis [Unknown]
  - Rash [Unknown]
  - Diarrhoea [Unknown]
